FAERS Safety Report 8658715 (Version 3)
Quarter: 2012Q4

REPORT INFORMATION
  Report Type: 
  Country: US (occurrence: US)
  Receive Date: 20120710
  Receipt Date: 20120903
  Transmission Date: 20130627
  Serious: No
  Sender: FDA-Public Use
  Company Number: US-BAYER-2012-067887

PATIENT
  Age: 33 Year
  Sex: Female
  Weight: 76 kg

DRUGS (2)
  1. MIRENA [Suspect]
     Indication: CONTRACEPTION
     Dosage: 20 mcg/24hr, CONT
     Route: 015
     Dates: start: 201111
  2. TEGRETOL XR [Concomitant]
     Dosage: 400 mg, BID
     Route: 048

REACTIONS (6)
  - Pregnancy with contraceptive device [None]
  - Device expulsion [None]
  - Nausea [None]
  - Vomiting [None]
  - Parosmia [None]
  - Complication of device removal [Not Recovered/Not Resolved]
